FAERS Safety Report 6060922-5 (Version None)
Quarter: 2009Q1

REPORT INFORMATION
  Report Type: 
  Country: None (occurrence: None)
  Receive Date: 20090130
  Receipt Date: 20090130
  Transmission Date: 20090719
  Serious: No
  Sender: FDA-Public Use
  Company Number: None

PATIENT
  Age: 69 Year
  Sex: Male
  Weight: 95.3 kg

DRUGS (1)
  1. AMOXICILLIN + CLAVULANATE POTASSIUM [Suspect]
     Indication: CELLULITIS
     Dosage: 875/125 MG BID PO
     Route: 048
     Dates: start: 20081118, end: 20081201

REACTIONS (4)
  - PRURITUS [None]
  - RASH [None]
  - SELF-MEDICATION [None]
  - URTICARIA [None]
